FAERS Safety Report 21020117 (Version 1)
Quarter: 2022Q2

REPORT INFORMATION
  Report Type: Spontaneous
  Country: FR (occurrence: FR)
  Receive Date: 20220628
  Receipt Date: 20220628
  Transmission Date: 20220720
  Serious: Yes (Other)
  Sender: FDA-Public Use
  Company Number: FR-PFM-2022-04993

PATIENT
  Age: 83 Year
  Sex: Female

DRUGS (3)
  1. NICOTINE [Suspect]
     Active Substance: NICOTINE
     Indication: Product used for unknown indication
     Dosage: 3 TO 4 TABLETS PER DAY BUT PROBABLY MORE
     Route: 002
  2. NICORETTE [Suspect]
     Active Substance: NICOTINE
     Indication: Product used for unknown indication
     Dosage: 3 TO 4 TABLETS PER DAY BUT PROBABLY MORE
  3. NICOPASS [Suspect]
     Active Substance: NICOTINE
     Indication: Product used for unknown indication
     Dosage: 3 TO 4 TABLETS PER DAY BUT PROBABLY MORE

REACTIONS (9)
  - Rhinorrhoea [Not Recovered/Not Resolved]
  - Vertigo [Not Recovered/Not Resolved]
  - Headache [Not Recovered/Not Resolved]
  - Adverse event [Not Recovered/Not Resolved]
  - Spinal osteoarthritis [Not Recovered/Not Resolved]
  - Dizziness [Not Recovered/Not Resolved]
  - Intentional product use issue [Unknown]
  - Nicotine dependence [Not Recovered/Not Resolved]
  - Drug abuse [Unknown]

NARRATIVE: CASE EVENT DATE: 20210101
